FAERS Safety Report 4510800-5 (Version None)
Quarter: 2004Q4

REPORT INFORMATION
  Report Type: 
  Country: None (occurrence: None)
  Receive Date: 20041122
  Receipt Date: 20041118
  Transmission Date: 20050328
  Serious: Yes (Hospitalization)
  Sender: FDA-Public Use
  Company Number: J081-002-001809

PATIENT
  Age: 89 Year
  Sex: 0

DRUGS (1)
  1. ARICEPT [Suspect]
     Dosage: 1 IN 1 D, ORAL
     Route: 048
     Dates: end: 20040101

REACTIONS (2)
  - DEPRESSED LEVEL OF CONSCIOUSNESS [None]
  - TRANSIENT ISCHAEMIC ATTACK [None]
